FAERS Safety Report 16666489 (Version 1)
Quarter: 2019Q3

REPORT INFORMATION
  Report Type: Spontaneous
  Country: US (occurrence: US)
  Receive Date: 20190805
  Receipt Date: 20190805
  Transmission Date: 20191004
  Serious: No
  Sender: FDA-Public Use
  Company Number: US-ASTRAZENECA-2019SF04507

PATIENT
  Sex: Female
  Weight: 109.8 kg

DRUGS (2)
  1. BYDUREON [Suspect]
     Active Substance: EXENATIDE
     Indication: DIABETES MELLITUS
     Route: 065
  2. INSULIN [Concomitant]
     Active Substance: INSULIN NOS

REACTIONS (5)
  - Weight increased [Unknown]
  - Injection site pain [Unknown]
  - Device malfunction [Unknown]
  - Product dose omission [Unknown]
  - Wrong technique in device usage process [Unknown]
